FAERS Safety Report 12458514 (Version 1)
Quarter: 2016Q2

REPORT INFORMATION
  Report Type: Spontaneous
  Country: US (occurrence: None)
  Receive Date: 20160610
  Receipt Date: 20160610
  Transmission Date: 20160815
  Serious: Yes (Other)
  Sender: FDA-Public Use
  Company Number: None

PATIENT
  Age: 13 Year
  Sex: Female
  Weight: 38.56 kg

DRUGS (3)
  1. QVAR [Suspect]
     Active Substance: BECLOMETHASONE DIPROPIONATE
     Indication: INFLUENZA
     Dosage: 1 PUFF(S)
     Route: 055
  2. QVAR [Suspect]
     Active Substance: BECLOMETHASONE DIPROPIONATE
     Indication: ASTHMA
     Dosage: 1 PUFF(S)
     Route: 055
  3. QVAR [Suspect]
     Active Substance: BECLOMETHASONE DIPROPIONATE
     Indication: COUGH
     Dosage: 1 PUFF(S)
     Route: 055

REACTIONS (1)
  - Suicidal behaviour [None]

NARRATIVE: CASE EVENT DATE: 20160601
